FAERS Safety Report 6240367-5 (Version None)
Quarter: 2009Q2

REPORT INFORMATION
  Report Type: 
  Country: None (occurrence: None)
  Receive Date: 20090618
  Receipt Date: 20090618
  Transmission Date: 20091009
  Serious: Yes (Hospitalization)
  Sender: FDA-Public Use
  Company Number: None

PATIENT
  Age: 53 Year
  Sex: Male
  Weight: 140.6151 kg

DRUGS (2)
  1. METOPROLOL TARTRATE [Suspect]
     Indication: HYPERTENSION
     Dosage: 50 MG BID PO
     Route: 048
     Dates: start: 20090116, end: 20090613
  2. METOPROLOL TARTRATE [Suspect]
     Indication: TACHYCARDIA
     Dosage: 50 MG BID PO
     Route: 048
     Dates: start: 20090116, end: 20090613

REACTIONS (4)
  - DYSPNOEA [None]
  - HYPERTENSION [None]
  - PRODUCT SUBSTITUTION ISSUE [None]
  - TACHYCARDIA [None]
